FAERS Safety Report 5170274-0 (Version None)
Quarter: 2006Q4

REPORT INFORMATION
  Report Type: 
  Country: None (occurrence: None)
  Receive Date: 20061204
  Receipt Date: 20061129
  Transmission Date: 20070319
  Serious: Yes (Life-Threatening, Hospitalization, Other)
  Sender: FDA-Public Use
  Company Number: GXKR2006DE07408

PATIENT
  Age: 40 Year
  Sex: Male

DRUGS (3)
  1. MIRTAZAPINE [Suspect]
     Indication: DEPRESSION
     Dosage: 45 MG, UNKNOWN
  2. RISPERIDONE [Suspect]
     Indication: SCHIZOPHRENIA
     Dosage: 8 MG, UNKNOWN
  3. RISPERIDONE [Suspect]
     Dosage: 3 MG, QD, UNKNOWN

REACTIONS (3)
  - EXTRAPYRAMIDAL DISORDER [None]
  - PULMONARY EMBOLISM [None]
  - RHABDOMYOLYSIS [None]
